FAERS Safety Report 14945496 (Version 4)
Quarter: 2018Q3

REPORT INFORMATION
  Report Type: Spontaneous
  Country: RO (occurrence: RO)
  Receive Date: 20180529
  Receipt Date: 20180712
  Transmission Date: 20181010
  Serious: Yes (Other)
  Sender: FDA-Public Use
  Company Number: RO-AUROBINDO-AUR-APL-2018-027323

PATIENT

DRUGS (9)
  1. DASABUVIR [Interacting]
     Active Substance: DASABUVIR
     Indication: HEPATIC CIRRHOSIS
     Dosage: 500 MG, DAILY
     Route: 048
  2. OMBITASVIR W/PARITAPREVIR/RITONAVIR [Interacting]
     Active Substance: OMBITASVIR\PARITAPREVIR\RITONAVIR
     Indication: HEPATITIS C
     Dosage: 1 (25/150/100MG)
     Route: 048
  3. OMBITASVIR W/PARITAPREVIR/RITONAVIR [Interacting]
     Active Substance: OMBITASVIR\PARITAPREVIR\RITONAVIR
     Indication: HEPATIC CIRRHOSIS
  4. PROPRANOLOL [Interacting]
     Active Substance: PROPRANOLOL HYDROCHLORIDE
     Indication: HAEMORRHAGE PROPHYLAXIS
  5. RIBAVIRIN. [Suspect]
     Active Substance: RIBAVIRIN
     Indication: HEPATITIS C
     Dosage: UNK
     Route: 048
  6. PROPRANOLOL [Interacting]
     Active Substance: PROPRANOLOL HYDROCHLORIDE
     Indication: HAEMORRHAGE PROPHYLAXIS
     Dosage: 120 MG, DAILY
     Route: 065
  7. PROPRANOLOL [Interacting]
     Active Substance: PROPRANOLOL HYDROCHLORIDE
     Indication: VARICES OESOPHAGEAL
  8. RIBAVIRIN. [Interacting]
     Active Substance: RIBAVIRIN
     Indication: HEPATIC CIRRHOSIS
  9. DASABUVIR [Interacting]
     Active Substance: DASABUVIR
     Indication: HEPATITIS C
     Dosage: 250 MILLIGRAM, TWO TIMES A DAY
     Route: 048

REACTIONS (7)
  - Bradycardia [Recovered/Resolved]
  - Drug administered to patient of inappropriate age [Unknown]
  - Drug interaction [Recovered/Resolved]
  - Inappropriate schedule of drug administration [Unknown]
  - Off label use [Unknown]
  - Syncope [Recovered/Resolved]
  - Product use in unapproved indication [Unknown]
